FAERS Safety Report 4358432-6 (Version None)
Quarter: 2004Q2

REPORT INFORMATION
  Report Type: 
  Country: None (occurrence: None)
  Receive Date: 20040514
  Receipt Date: 20040405
  Transmission Date: 20050107
  Serious: Yes (Life-Threatening, Hospitalization)
  Sender: FDA-Public Use
  Company Number: US-ROCHE-366030

PATIENT
  Age: 61 Year
  Sex: Female
  Weight: 70 kg

DRUGS (4)
  1. PLACEBO [Concomitant]
     Route: 042
     Dates: start: 20010726, end: 20010824
  2. FLUOROURACIL [Suspect]
     Route: 042
  3. IRINOTECAN [Suspect]
     Route: 065
  4. LEUCOVORIN CALCIUM [Suspect]
     Route: 065

REACTIONS (4)
  - DEEP VEIN THROMBOSIS [None]
  - ILIAC ARTERY THROMBOSIS [None]
  - PHLEBOTHROMBOSIS [None]
  - PULMONARY EMBOLISM [None]
